FAERS Safety Report 24597545 (Version 2)
Quarter: 2025Q2

REPORT INFORMATION
  Report Type: Spontaneous
  Country: US (occurrence: US)
  Receive Date: 20241110
  Receipt Date: 20250513
  Transmission Date: 20250716
  Serious: No
  Sender: SANOFI AVENTIS
  Company Number: US-SA-2024SA300105

PATIENT
  Age: 60 Year
  Sex: Male
  Weight: 99.8 kg

DRUGS (5)
  1. DUPIXENT [Suspect]
     Active Substance: DUPILUMAB
     Indication: Asthma
     Dosage: 300 MG, QOW
     Route: 065
     Dates: start: 202410
  2. TRELEGY ELLIPTA [Concomitant]
     Active Substance: FLUTICASONE FUROATE\UMECLIDINIUM BROMIDE\VILANTEROL TRIFENATATE
  3. ALBUTEROL SULFATE [Concomitant]
     Active Substance: ALBUTEROL SULFATE
  4. MUCINEX [Concomitant]
     Active Substance: GUAIFENESIN
  5. PERCOCET [Concomitant]
     Active Substance: ACETAMINOPHEN\OXYCODONE HYDROCHLORIDE

REACTIONS (8)
  - Injection site pain [Unknown]
  - Weight decreased [Unknown]
  - Nausea [Unknown]
  - Urticaria [Unknown]
  - Asthma [Unknown]
  - Dyspnoea [Unknown]
  - Accidental exposure to product [Unknown]
  - Exposure via skin contact [Unknown]
